FAERS Safety Report 11117009 (Version 3)
Quarter: 2015Q2

REPORT INFORMATION
  Report Type: Spontaneous
  Country: US (occurrence: US)
  Receive Date: 20150515
  Receipt Date: 20150603
  Transmission Date: 20150821
  Serious: No
  Sender: FDA-Public Use
  Company Number: US-PFIZER INC-2015154303

PATIENT
  Age: 63 Year
  Sex: Female
  Weight: 62 kg

DRUGS (1)
  1. TOVIAZ [Suspect]
     Active Substance: FESOTERODINE FUMARATE
     Indication: HYPERTONIC BLADDER
     Dosage: 4 MG
     Dates: start: 20150429

REACTIONS (2)
  - Drug ineffective [Recovered/Resolved]
  - Abdominal pain [Recovered/Resolved]

NARRATIVE: CASE EVENT DATE: 2015
